FAERS Safety Report 19138737 (Version 1)
Quarter: 2021Q2

REPORT INFORMATION
  Report Type: Spontaneous
  Country: CA (occurrence: CA)
  Receive Date: 20210415
  Receipt Date: 20210415
  Transmission Date: 20210717
  Serious: Yes (Life-Threatening)
  Sender: FDA-Public Use
  Company Number: CA-ROCHE-2808014

PATIENT
  Age: 40 Year
  Sex: Female

DRUGS (4)
  1. RITUXIMAB. [Suspect]
     Active Substance: RITUXIMAB
     Indication: PRODUCT USED FOR UNKNOWN INDICATION
     Route: 065
  2. MEPOLIZUMAB [Suspect]
     Active Substance: MEPOLIZUMAB
     Indication: PRODUCT USED FOR UNKNOWN INDICATION
     Route: 042
  3. BUDESONIDE;FORMOTEROL FUMARATE [Suspect]
     Active Substance: BUDESONIDE\FORMOTEROL FUMARATE
     Indication: PRODUCT USED FOR UNKNOWN INDICATION
     Route: 045
  4. PREDNISONE. [Suspect]
     Active Substance: PREDNISONE
     Indication: PRODUCT USED FOR UNKNOWN INDICATION
     Route: 065

REACTIONS (14)
  - Impaired quality of life [Unknown]
  - Sinusitis [Unknown]
  - Incorrect product administration duration [Unknown]
  - Dyspnoea [Unknown]
  - Steroid diabetes [Unknown]
  - Heart rate increased [Unknown]
  - Weight increased [Unknown]
  - Asthma [Unknown]
  - Hypertension [Unknown]
  - Nasopharyngitis [Unknown]
  - Apparent life threatening event [Unknown]
  - Eosinophilic granulomatosis with polyangiitis [Unknown]
  - Infection [Unknown]
  - Respiratory symptom [Unknown]
